FAERS Safety Report 8316712-3 (Version None)
Quarter: 2012Q2

REPORT INFORMATION
  Report Type: 
  Country: None (occurrence: None)
  Receive Date: 20120427
  Receipt Date: 20120418
  Transmission Date: 20120825
  Serious: Yes (Other)
  Sender: FDA-Public Use
  Company Number: NO-BAYER-2012-023741

PATIENT
  Age: 41 Year
  Sex: Female

DRUGS (1)
  1. MIRENA [Suspect]
     Indication: CONTRACEPTION
     Dosage: 20 MCG/24HR, CONT
     Route: 015
     Dates: start: 20070101, end: 20120216

REACTIONS (4)
  - COMPLICATION OF DEVICE REMOVAL [None]
  - CERVIX DISORDER [None]
  - PROCEDURAL HAEMORRHAGE [None]
  - CERVICAL CYST [None]
